FAERS Safety Report 7534754-2 (Version None)
Quarter: 2011Q2

REPORT INFORMATION
  Report Type: 
  Country: None (occurrence: None)
  Receive Date: 20110609
  Receipt Date: 20080716
  Transmission Date: 20111010
  Serious: Yes (Death, Hospitalization)
  Sender: FDA-Public Use
  Company Number: PHFR2007IE03589

PATIENT
  Sex: Female

DRUGS (4)
  1. CLOZAPINE [Suspect]
     Indication: SCHIZOPHRENIA
     Dosage: 325 MG PER DAY
     Route: 048
     Dates: start: 19990809
  2. DIAZEPAM [Concomitant]
     Indication: ANXIETY
     Dosage: 6 MG DAILY
     Route: 048
     Dates: start: 20040812
  3. VALPROIC ACID [Concomitant]
     Indication: AFFECTIVE DISORDER
     Dosage: 700 MG DAILY
  4. LEVOTHYROXINE SODIUM [Concomitant]
     Indication: HYPOTHYROIDISM
     Dosage: 150 UG DAILY

REACTIONS (3)
  - METASTATIC NEOPLASM [None]
  - WEIGHT DECREASED [None]
  - BALANCE DISORDER [None]
